FAERS Safety Report 9163048 (Version 1)
Quarter: 2013Q1

REPORT INFORMATION
  Report Type: Spontaneous
  Country: PL (occurrence: PL)
  Receive Date: 20130314
  Receipt Date: 20130314
  Transmission Date: 20140127
  Serious: Yes (Other)
  Sender: FDA-Public Use
  Company Number: PL-UCBSA-080396

PATIENT
  Age: 37 Year
  Sex: Male

DRUGS (12)
  1. KEPPRA [Suspect]
     Indication: EPILEPSY
     Dosage: A TARGET DOSE OF 1500-2000 MG
  2. KEPPRA [Suspect]
     Indication: EPILEPSY
     Dosage: 250.500 MG TWICE DAILY
  3. VENLAFAXINE [Concomitant]
     Indication: DEPRESSION
     Dosage: (75MG)
  4. RAMIPRIL [Concomitant]
     Indication: HYPERTENSION
     Dosage: (2.5MG)
  5. TOPIRAMATE [Concomitant]
     Indication: EPILEPSY
     Dosage: 2 X 75 MG
  6. ALERTEC [Concomitant]
     Indication: SEASONAL ALLERGY
  7. VALPROIC ACID [Concomitant]
     Indication: EPILEPSY
     Dosage: 1500MG
  8. VALPROIC ACID [Concomitant]
     Indication: EPILEPSY
     Dosage: 1800MG
  9. CARBAMAZEPINE [Concomitant]
     Indication: EPILEPSY
     Dosage: 400-200-400
  10. CARBAMAZEPINE [Concomitant]
     Indication: EPILEPSY
     Dosage: 2 X 600 -1200 MG
  11. CARBAMAZEPINE [Concomitant]
     Indication: EPILEPSY
     Dosage: REDUCED
  12. CARBAMAZEPINE [Concomitant]
     Indication: EPILEPSY
     Dosage: 1200MG

REACTIONS (10)
  - Depression [Recovered/Resolved]
  - Eosinophilia [Unknown]
  - Microalbuminuria [Unknown]
  - Unevaluable event [Unknown]
  - Cystitis [Unknown]
  - Hepatomegaly [Unknown]
  - Convulsion [Unknown]
  - Seasonal allergy [Unknown]
  - Blood glucose decreased [Unknown]
  - Insomnia [Unknown]
